FAERS Safety Report 22113787 (Version 1)
Quarter: 2023Q1

REPORT INFORMATION
  Report Type: Spontaneous
  Country: ES (occurrence: ES)
  Receive Date: 20230320
  Receipt Date: 20230320
  Transmission Date: 20230418
  Serious: Yes (Other)
  Sender: FDA-Public Use
  Company Number: None

PATIENT
  Age: 64 Year
  Sex: Female

DRUGS (12)
  1. ADALIMUMAB [Suspect]
     Active Substance: ADALIMUMAB
     Indication: Lupus-like syndrome
     Dosage: UNK
     Route: 065
     Dates: start: 20220501, end: 20221201
  2. INDACATEROL [Concomitant]
     Active Substance: INDACATEROL
     Indication: Bronchitis chronic
     Dosage: 150 MCG C/24 H (1 INHALADOR PLUS 30 CAPSULAS)
     Route: 065
     Dates: start: 20150424
  3. ADVENTAN [Concomitant]
     Indication: Dermatitis
     Dosage: 1.0 APLIC C/12 H (1 TUBO DE 60 G)
     Route: 061
     Dates: start: 20210423
  4. LEVOTHYROXINE SODIUM [Concomitant]
     Active Substance: LEVOTHYROXINE SODIUM
     Indication: Hypothyroidism
     Dosage: 150.0 MCG A-DE (100 COMPRIMIDOS)
     Route: 048
     Dates: start: 20201006
  5. CHOLECALCIFEROL [Concomitant]
     Active Substance: CHOLECALCIFEROL
     Indication: Vitamin D deficiency
     Dosage: 25000.0 UI C/14 DIAS (25,000 IU/2.5 ML ORAL SOLUTION, 4 BOTTLES OF 2.5 ML)
     Route: 048
     Dates: start: 20211231
  6. ESCITALOPRAM OXALATE [Concomitant]
     Active Substance: ESCITALOPRAM OXALATE
     Indication: Anxiety disorder
     Dosage: 5 MG DE (EFG, 56 COMPRIMIDOS)
     Route: 048
     Dates: start: 20211221
  7. HYDROXYCHLOROQUINE SULFATE [Concomitant]
     Active Substance: HYDROXYCHLOROQUINE SULFATE
     Indication: Dermatitis
     Dosage: 200 MG C/24 H (30 COMPRIMIDOS)
     Route: 048
     Dates: start: 20220803
  8. STELARA [Concomitant]
     Active Substance: USTEKINUMAB
     Indication: Crohn^s disease
     Dosage: 90 MG (1 JERINGA PRECARGADA)
     Route: 058
     Dates: start: 20220415
  9. FERROUS SULFATE [Concomitant]
     Active Substance: FERROUS SULFATE
     Indication: Iron deficiency anaemia
     Dosage: 256.3 MG C/24 H AM (30 COMPRIMIDOS)
     Route: 048
     Dates: start: 20130605
  10. CYANOCOBALAMIN [Concomitant]
     Active Substance: CYANOCOBALAMIN
     Indication: Hypothyroidism
     Dosage: 1 MG C/30 DIAS (5 AMPOLLAS DE 2 ML )
     Route: 030
     Dates: start: 20121211
  11. OMEPRAZOLE STADA [Concomitant]
     Indication: Gastritis
     Dosage: 20 MG A-DE ( EFG ,56 C?PSULAS)
     Route: 048
     Dates: start: 20190914
  12. FOLIC ACID [Concomitant]
     Active Substance: FOLIC ACID
     Indication: Systemic lupus erythematosus
     Dosage: 5 MG C/7 DIAS (28 COMPRIMIDOS)
     Route: 048
     Dates: start: 20211124

REACTIONS (1)
  - Dermatitis [Recovering/Resolving]

NARRATIVE: CASE EVENT DATE: 20220901
